FAERS Safety Report 15641293 (Version 1)
Quarter: 2018Q4

REPORT INFORMATION
  Report Type: Spontaneous
  Country: DK (occurrence: DK)
  Receive Date: 20181120
  Receipt Date: 20181120
  Transmission Date: 20190205
  Serious: Yes (Other)
  Sender: FDA-Public Use
  Company Number: PHHY2018DK157251

PATIENT
  Age: 46 Year
  Sex: Female

DRUGS (3)
  1. OXAPAX [Suspect]
     Active Substance: OXAZEPAM
     Indication: RESTLESSNESS
     Dosage: 7.5 MG, UNK (DOSIS: 7.5 MG EFTER BEHOV, H?JST 3 X DAGLIGT.)
     Route: 048
     Dates: start: 20180116, end: 20180307
  2. LAMOTRIGIN AUROBINDO [Suspect]
     Active Substance: LAMOTRIGINE
     Indication: SUICIDE ATTEMPT
     Dosage: DOSIS: NORMALT: 200 MG 1 DGL. VED SELVMORDSFORS?G: UKENDT.
     Route: 048
  3. RIVOTRIL [Suspect]
     Active Substance: CLONAZEPAM
     Indication: SUICIDE ATTEMPT
     Dosage: UNK
     Route: 048

REACTIONS (3)
  - Drug-induced liver injury [Not Recovered/Not Resolved]
  - Headache [Not Recovered/Not Resolved]
  - Blood urine present [Not Recovered/Not Resolved]
